FAERS Safety Report 21281737 (Version 1)
Quarter: 2022Q3

REPORT INFORMATION
  Report Type: Report from Study
  Country: CO (occurrence: CO)
  Receive Date: 20220901
  Receipt Date: 20220901
  Transmission Date: 20221027
  Serious: Yes (Death)
  Sender: FDA-Public Use
  Company Number: CO-ABBVIE-22K-036-4524652-00

PATIENT
  Age: 28 Year
  Sex: Male

DRUGS (1)
  1. VENETOCLAX [Suspect]
     Active Substance: VENETOCLAX
     Indication: Acute myeloid leukaemia
     Route: 048
     Dates: start: 20220811, end: 20220830

REACTIONS (3)
  - Blood bilirubin increased [Fatal]
  - Neutropenia [Fatal]
  - Jaundice [Fatal]

NARRATIVE: CASE EVENT DATE: 20220829
